FAERS Safety Report 17170336 (Version 1)
Quarter: 2019Q4

REPORT INFORMATION
  Report Type: Other
  Country: US (occurrence: US)
  Receive Date: 20191218
  Receipt Date: 20191218
  Transmission Date: 20200122
  Serious: Yes (Hospitalization)
  Sender: FDA-Public Use
  Company Number: US-INTERCEPT-PM2019002249

PATIENT
  Sex: Female

DRUGS (3)
  1. OCALIVA [Suspect]
     Active Substance: OBETICHOLIC ACID
     Indication: PRIMARY BILIARY CHOLANGITIS
     Dosage: 5 MG, QOD
     Route: 048
     Dates: start: 20190519, end: 201905
  2. OCALIVA [Suspect]
     Active Substance: OBETICHOLIC ACID
     Dosage: 5 MG, QD
     Route: 048
     Dates: start: 201905, end: 20190712
  3. URSODIOL. [Concomitant]
     Active Substance: URSODIOL
     Indication: PRODUCT USED FOR UNKNOWN INDICATION
     Dosage: UNK

REACTIONS (7)
  - Blood glucose decreased [Unknown]
  - Gallbladder rupture [Unknown]
  - Asthenia [Not Recovered/Not Resolved]
  - Weight decreased [Unknown]
  - Hypotension [Unknown]
  - Jaundice [Not Recovered/Not Resolved]
  - Blood bilirubin increased [Recovering/Resolving]

NARRATIVE: CASE EVENT DATE: 2019
